FAERS Safety Report 23605546 (Version 3)
Quarter: 2024Q2

REPORT INFORMATION
  Report Type: Spontaneous
  Country: US (occurrence: US)
  Receive Date: 20240307
  Receipt Date: 20240401
  Transmission Date: 20240716
  Serious: No
  Sender: FDA-Public Use
  Company Number: US-SA-SAC20240304000099

PATIENT
  Age: 59 Year
  Sex: Female
  Weight: 204 kg

DRUGS (33)
  1. DUPIXENT [Suspect]
     Active Substance: DUPILUMAB
     Indication: Asthma
     Dosage: 300 MG, QOW
     Route: 058
     Dates: start: 202301
  2. IRBESARTAN [Concomitant]
     Active Substance: IRBESARTAN
     Dosage: 300 MG, QD
  3. CEFUROXIME [Concomitant]
     Active Substance: CEFUROXIME
  4. PREDNISONE [Concomitant]
     Active Substance: PREDNISONE
     Dosage: 2.5 UNK
  5. BREZTRI [Concomitant]
     Active Substance: BUDESONIDE\FORMOTEROL\GLYCOPYRROLATE
  6. TYLENOL PM EXTRA STRENGTH [Concomitant]
     Active Substance: ACETAMINOPHEN\DIPHENHYDRAMINE HYDROCHLORIDE
  7. VITAMIN D3 [Concomitant]
     Active Substance: CHOLECALCIFEROL
  8. ALLEGRA ALLERGY [Concomitant]
     Active Substance: FEXOFENADINE HYDROCHLORIDE
  9. FISH OIL [Concomitant]
     Active Substance: FISH OIL
  10. SERTRALINE HYDROCHLORIDE [Concomitant]
     Active Substance: SERTRALINE HYDROCHLORIDE
  11. ALBUTEROL SULFATE [Concomitant]
     Active Substance: ALBUTEROL SULFATE
  12. MUCINEX [Concomitant]
     Active Substance: GUAIFENESIN
  13. MOMETASONE FUROATE [Concomitant]
     Active Substance: MOMETASONE FUROATE
  14. MOMETASONE FUROATE [Concomitant]
     Active Substance: MOMETASONE FUROATE
  15. METHOTREXATE SODIUM [Concomitant]
     Active Substance: METHOTREXATE SODIUM
  16. FOLIC ACID [Concomitant]
     Active Substance: FOLIC ACID
  17. TIROSINT [Concomitant]
     Active Substance: LEVOTHYROXINE SODIUM
     Dosage: 1800 UG, QW
  18. MELATONIN [Concomitant]
     Active Substance: MELATONIN
     Dosage: 20 MG, QD
  19. SINGULAIR [Concomitant]
     Active Substance: MONTELUKAST SODIUM
  20. HUMAN IMMUNOGLOBULIN G [Concomitant]
     Active Substance: HUMAN IMMUNOGLOBULIN G
     Dosage: WEEKLY
  21. HERBALS\TURMERIC [Concomitant]
     Active Substance: HERBALS\TURMERIC
     Dosage: 1000 MG, QD
  22. LASIX [Concomitant]
     Active Substance: FUROSEMIDE
  23. VITAMIN D NOS [Concomitant]
     Active Substance: VITAMIN D NOS
     Dosage: 2000 IU, QD
  24. METFORMIN [Concomitant]
     Active Substance: METFORMIN HYDROCHLORIDE
  25. PLAQUENIL [Concomitant]
     Active Substance: HYDROXYCHLOROQUINE SULFATE
  26. SERTRALINE [Concomitant]
     Active Substance: SERTRALINE HYDROCHLORIDE
  27. CUVITRU [Concomitant]
     Active Substance: HUMAN IMMUNOGLOBULIN G
     Dosage: CUVITRU 20 G SUBCUTANEOUS INFUSION WEEKLY (IGG INFUSION)
  28. AZITHROMYCIN [Concomitant]
     Active Substance: AZITHROMYCIN
  29. METHOTREXATE [Concomitant]
     Active Substance: METHOTREXATE
  30. BRIMONIDINE [Concomitant]
     Active Substance: BRIMONIDINE TARTRATE
  31. ROCKLATAN [Concomitant]
     Active Substance: LATANOPROST\NETARSUDIL MESYLATE
  32. PREDNISONE [Concomitant]
     Active Substance: PREDNISONE
  33. PREDNISONE [Concomitant]
     Active Substance: PREDNISONE

REACTIONS (14)
  - Injection site haemorrhage [Unknown]
  - Injection site warmth [Unknown]
  - Injection site vesicles [Unknown]
  - Injection site discolouration [Unknown]
  - Injection site discomfort [Unknown]
  - Injection site bruising [Unknown]
  - Injection site erythema [Unknown]
  - Injection site pain [Unknown]
  - Injection site pruritus [Unknown]
  - Gait disturbance [Unknown]
  - Skin burning sensation [Unknown]
  - Myalgia [Unknown]
  - Erythema [Unknown]
  - Pruritus [Unknown]

NARRATIVE: CASE EVENT DATE: 20240216
